FAERS Safety Report 9242257 (Version 1)
Quarter: 2013Q2

REPORT INFORMATION
  Report Type: Spontaneous
  Country: CA (occurrence: US)
  Receive Date: 20130419
  Receipt Date: 20130424
  Transmission Date: 20140414
  Serious: Yes (Other)
  Sender: FDA-Public Use
  Company Number: US-PFIZER INC-2013119212

PATIENT
  Age: 14 Year
  Sex: Female
  Weight: 43 kg

DRUGS (4)
  1. EPINEPHRINE [Suspect]
     Indication: HAEMORRHAGE
     Dosage: 5 VIALS OF 1:1000 DILUTION (5 MGM)
  2. DIAZEPAM [Concomitant]
     Indication: ANAESTHESIA PROCEDURE
     Dosage: UNK
  3. FENTANYL [Concomitant]
     Indication: ANAESTHESIA PROCEDURE
     Dosage: UNK
  4. PENTOTHAL SODIUM [Concomitant]
     Indication: ANAESTHESIA PROCEDURE
     Dosage: UNK

REACTIONS (7)
  - Accidental overdose [Recovered/Resolved]
  - Blood pressure increased [Recovered/Resolved]
  - Sinus tachycardia [Recovered/Resolved]
  - Ventricular arrhythmia [Recovered/Resolved]
  - Electrocardiogram ST segment depression [Recovered/Resolved]
  - Supraventricular tachycardia [Recovered/Resolved]
  - Myocardial strain [Recovered/Resolved]
